FAERS Safety Report 7769014-8 (Version None)
Quarter: 2011Q3

REPORT INFORMATION
  Report Type: 
  Country: None (occurrence: None)
  Receive Date: 20110922
  Receipt Date: 20110511
  Transmission Date: 20111222
  Serious: No
  Sender: FDA-Public Use
  Company Number: US-ASTRAZENECA-2011SE01415

PATIENT
  Age: 32 Year
  Sex: Male

DRUGS (1)
  1. SEROQUEL XR [Suspect]
     Route: 048

REACTIONS (6)
  - MENTAL DISORDER [None]
  - PANIC ATTACK [None]
  - AFFECT LABILITY [None]
  - HALLUCINATION, AUDITORY [None]
  - ANXIETY [None]
  - EUPHORIC MOOD [None]
